FAERS Safety Report 6976399-9 (Version None)
Quarter: 2010Q3

REPORT INFORMATION
  Report Type: 
  Country: None (occurrence: None)
  Receive Date: 20100910
  Receipt Date: 20100825
  Transmission Date: 20110219
  Serious: Yes (Hospitalization, Other)
  Sender: FDA-Public Use
  Company Number: US-SANOFI-AVENTIS-2010SA051847

PATIENT
  Age: 81 Year
  Sex: Male

DRUGS (6)
  1. PLAVIX [Suspect]
     Route: 048
     Dates: start: 20090501
  2. ASPIRIN [Suspect]
     Indication: STENT PLACEMENT
     Route: 065
     Dates: start: 20090501, end: 20090601
  3. ASPIRIN [Suspect]
     Route: 065
     Dates: end: 20100301
  4. LOPRESSOR [Concomitant]
  5. HYTRIN [Concomitant]
  6. NORVASC [Concomitant]

REACTIONS (3)
  - FAECES DISCOLOURED [None]
  - GASTRIC ULCER [None]
  - GASTROINTESTINAL HAEMORRHAGE [None]
